FAERS Safety Report 9787263 (Version 2)
Quarter: 2014Q1

REPORT INFORMATION
  Report Type: Spontaneous
  Country: US (occurrence: US)
  Receive Date: 20131230
  Receipt Date: 20140212
  Transmission Date: 20141002
  Serious: No
  Sender: FDA-Public Use
  Company Number: US-009507513-1312USA011829

PATIENT
  Age: 37 Year
  Sex: Female

DRUGS (1)
  1. SYLATRON [Suspect]
     Dosage: 360 MICROGRAM, QW
     Dates: start: 20131223

REACTIONS (2)
  - Overdose [Unknown]
  - No adverse event [Unknown]
